FAERS Safety Report 8523946 (Version 3)
Quarter: 2012Q4

REPORT INFORMATION
  Report Type: 
  Country: US (occurrence: US)
  Receive Date: 20120420
  Receipt Date: 20121024
  Transmission Date: 20130627
  Serious: Yes (Other)
  Sender: FDA-Public Use
  Company Number: US-ASTRAZENECA-2012SE17057

PATIENT
  Age: 55 Year
  Sex: Female

DRUGS (2)
  1. NEXIUM [Suspect]
     Indication: GASTROOESOPHAGEAL REFLUX DISEASE
     Route: 048
  2. OMEPRAZOLE [Suspect]
     Route: 048

REACTIONS (9)
  - Concussion [Unknown]
  - Gastrooesophageal reflux disease [Unknown]
  - Arthritis [Unknown]
  - Tremor [Unknown]
  - Hypoacusis [Unknown]
  - Aphagia [Unknown]
  - Adverse event [Unknown]
  - Drug ineffective [Unknown]
  - Drug dose omission [Unknown]
